FAERS Safety Report 10794457 (Version 1)
Quarter: 2015Q1

REPORT INFORMATION
  Report Type: Spontaneous
  Country: US (occurrence: US)
  Receive Date: 20150213
  Receipt Date: 20150213
  Transmission Date: 20150721
  Serious: No
  Sender: FDA-Public Use
  Company Number: US-ASTRAZENECA-2015SE11908

PATIENT
  Sex: Female

DRUGS (1)
  1. NEXIUM [Suspect]
     Active Substance: ESOMEPRAZOLE MAGNESIUM
     Route: 048

REACTIONS (12)
  - Crohn^s disease [Unknown]
  - Biotin deficiency [Unknown]
  - Arthralgia [Unknown]
  - Abdominal pain upper [Unknown]
  - Blood magnesium decreased [Unknown]
  - Irritable bowel syndrome [Unknown]
  - Thirst [Unknown]
  - Diarrhoea [Unknown]
  - Dry mouth [Unknown]
  - Vitamin B12 decreased [Unknown]
  - Headache [Unknown]
  - Dizziness [Unknown]
